FAERS Safety Report 7682756-8 (Version None)
Quarter: 2011Q3

REPORT INFORMATION
  Report Type: 
  Country: None (occurrence: None)
  Receive Date: 20110815
  Receipt Date: 20110804
  Transmission Date: 20111222
  Serious: Yes (Death)
  Sender: FDA-Public Use
  Company Number: CA-JNJFOC-20110608300

PATIENT
  Sex: Male
  Weight: 103 kg

DRUGS (8)
  1. ABIRATERONE ACETATE [Suspect]
     Indication: PROSTATE CANCER METASTATIC
     Route: 048
     Dates: start: 20110301, end: 20110619
  2. OXYCET [Concomitant]
     Indication: PAIN
     Route: 048
     Dates: start: 20100101
  3. OXYCONTIN [Concomitant]
     Indication: PAIN
     Route: 048
     Dates: start: 20100101
  4. GABAPENTIN [Concomitant]
     Indication: PAIN
     Route: 048
     Dates: start: 20110101
  5. ABIRATERONE ACETATE [Suspect]
     Route: 048
  6. FUROSEMIDE [Concomitant]
     Route: 048
     Dates: start: 20100101
  7. PREDNISONE [Suspect]
     Indication: PROSTATE CANCER METASTATIC
     Route: 048
     Dates: start: 20100101
  8. CELECOXIB [Concomitant]
     Indication: PAIN
     Route: 048
     Dates: start: 20110101

REACTIONS (1)
  - DEATH [None]
